FAERS Safety Report 4438769-2 (Version None)
Quarter: 2004Q3

REPORT INFORMATION
  Report Type: 
  Country: None (occurrence: None)
  Receive Date: 20040901
  Receipt Date: 20040826
  Transmission Date: 20050211
  Serious: Yes (Other)
  Sender: FDA-Public Use
  Company Number: DE-BRISTOL-MYERS SQUIBB COMPANY-12685210

PATIENT
  Sex: Female

DRUGS (1)
  1. KARVEZIDE [Suspect]
     Indication: HYPERTENSION
     Route: 048

REACTIONS (2)
  - HEPATOCELLULAR DAMAGE [None]
  - TRANSAMINASES INCREASED [None]
